FAERS Safety Report 24805727 (Version 2)
Quarter: 2025Q4

REPORT INFORMATION
  Report Type: Spontaneous
  Country: US (occurrence: US)
  Receive Date: 20250103
  Receipt Date: 20251211
  Transmission Date: 20260119
  Serious: Yes (Other)
  Sender: PFIZER
  Company Number: US-PFIZER INC-PV202400170651

PATIENT
  Age: 59 Year
  Sex: Male

DRUGS (4)
  1. TIKOSYN [Suspect]
     Active Substance: DOFETILIDE
     Dosage: UNK
  2. METOPROLOL TARTRATE [Suspect]
     Active Substance: METOPROLOL TARTRATE
     Indication: Hypertension
     Dosage: UNK
  3. ENTRESTO [Suspect]
     Active Substance: SACUBITRIL\VALSARTAN
     Dosage: 24 MG, 2X/DAY
     Dates: start: 2022
  4. FAMOTIDINE [Suspect]
     Active Substance: FAMOTIDINE
     Dosage: UNK

REACTIONS (7)
  - Cardiac operation [Unknown]
  - Tachycardia [Unknown]
  - Blood cholesterol increased [Unknown]
  - Peripheral swelling [Unknown]
  - Hypertension [Unknown]
  - Echocardiogram abnormal [Unknown]
  - Off label use [Unknown]

NARRATIVE: CASE EVENT DATE: 20070101
